FAERS Safety Report 5018091-6 (Version None)
Quarter: 2006Q2

REPORT INFORMATION
  Report Type: 
  Country: None (occurrence: None)
  Receive Date: 20060530
  Receipt Date: 20060515
  Transmission Date: 20061013
  Serious: Yes (Death, Hospitalization)
  Sender: FDA-Public Use
  Company Number: 2005144880

PATIENT
  Sex: Female

DRUGS (8)
  1. NEURONTIN [Suspect]
     Indication: FIBROMYALGIA
  2. NEURONTIN [Suspect]
     Indication: NEUROPATHY PERIPHERAL
  3. PROZAC [Concomitant]
  4. TRAZODONE HCL [Concomitant]
  5. XANAX [Concomitant]
  6. MIDRIN (DICHLORALPHENAZONE, ISOMETHEPTENE, PARACETAMOL) [Concomitant]
  7. LORCET-HD [Concomitant]
  8. NITROGLYCERIN [Concomitant]

REACTIONS (13)
  - APALLIC SYNDROME [None]
  - CEREBRAL HAEMORRHAGE [None]
  - CEREBROVASCULAR DISORDER [None]
  - COMPLETED SUICIDE [None]
  - DRUG INEFFECTIVE [None]
  - DRUG SCREEN POSITIVE [None]
  - ECCHYMOSIS [None]
  - GUN SHOT WOUND [None]
  - HAEMATOMA [None]
  - HEAD INJURY [None]
  - INTRAVENTRICULAR HAEMORRHAGE [None]
  - SELF INJURIOUS BEHAVIOUR [None]
  - SKULL FRACTURED BASE [None]
